FAERS Safety Report 12929872 (Version 2)
Quarter: 2016Q4

REPORT INFORMATION
  Report Type: Spontaneous
  Country: US (occurrence: US)
  Receive Date: 20161110
  Receipt Date: 20161227
  Transmission Date: 20170207
  Serious: Yes (Other)
  Sender: FDA-Public Use
  Company Number: US-IMPAX LABORATORIES, INC-2016-IPXL-01492

PATIENT
  Age: 37 Year
  Sex: Male

DRUGS (2)
  1. MORPHINE SULFATE ER [Suspect]
     Active Substance: MORPHINE SULFATE
     Dosage: 15 MG, THREE OCCASIONS
     Route: 042
  2. MORPHINE SULFATE ER [Suspect]
     Active Substance: MORPHINE SULFATE
     Indication: PAIN
     Dosage: UNK
     Route: 065

REACTIONS (3)
  - Pericarditis [Recovered/Resolved]
  - Incorrect route of drug administration [Unknown]
  - Myocarditis [Recovered/Resolved]
